FAERS Safety Report 5963742-2 (Version None)
Quarter: 2008Q4

REPORT INFORMATION
  Report Type: 
  Country: None (occurrence: None)
  Receive Date: 20081121
  Receipt Date: 20081121
  Transmission Date: 20090506
  Serious: No
  Sender: FDA-Public Use
  Company Number: None

PATIENT
  Age: 20 Year
  Sex: Female
  Weight: 50.3493 kg

DRUGS (1)
  1. SINGULAIR [Suspect]
     Indication: BRONCHIAL HYPERREACTIVITY
     Dosage: TAKE 10MG TABLET DAILY PO
     Route: 048
     Dates: start: 20030707, end: 20080418

REACTIONS (2)
  - DEPRESSION [None]
  - EATING DISORDER [None]
